FAERS Safety Report 10312179 (Version 1)
Quarter: 2014Q3

REPORT INFORMATION
  Report Type: Spontaneous
  Country: US (occurrence: US)
  Receive Date: 20140718
  Receipt Date: 20140718
  Transmission Date: 20150326
  Serious: Yes (Other)
  Sender: FDA-Public Use
  Company Number: PHHY2014US085864

PATIENT
  Age: 37 Year
  Sex: Female

DRUGS (3)
  1. LEVOTHYROXINE [Concomitant]
     Active Substance: LEVOTHYROXINE
  2. DULOXETINE [Concomitant]
     Active Substance: DULOXETINE
  3. TRAMADOL [Suspect]
     Active Substance: TRAMADOL
     Dosage: 100-200 MG, DAILY

REACTIONS (2)
  - Sleep apnoea syndrome [Unknown]
  - Somnolence [Unknown]
